FAERS Safety Report 15724092 (Version 1)
Quarter: 2018Q4

REPORT INFORMATION
  Report Type: Spontaneous
  Country: PT (occurrence: PT)
  Receive Date: 20181214
  Receipt Date: 20181214
  Transmission Date: 20190205
  Serious: Yes (Other)
  Sender: FDA-Public Use
  Company Number: PT-BAYER-2017-185514

PATIENT
  Age: 30 Year
  Sex: Female

DRUGS (1)
  1. JAYDESS [Suspect]
     Active Substance: LEVONORGESTREL
     Indication: CONTRACEPTION
     Dosage: 14 MCG/24HR, CONT
     Route: 015
     Dates: start: 201706, end: 20180614

REACTIONS (7)
  - Panic attack [None]
  - Renal pain [Recovered/Resolved]
  - Hormone level abnormal [None]
  - Renal pain [Recovered/Resolved]
  - Weight increased [None]
  - Genital haemorrhage [Recovered/Resolved]
  - Renal pain [Recovering/Resolving]

NARRATIVE: CASE EVENT DATE: 201706
